FAERS Safety Report 4407824-5 (Version None)
Quarter: 2004Q3

REPORT INFORMATION
  Report Type: 
  Country: None (occurrence: None)
  Receive Date: 20040726
  Receipt Date: 20040520
  Transmission Date: 20050211
  Serious: Yes (Hospitalization)
  Sender: FDA-Public Use
  Company Number: JP-GLAXOSMITHKLINE-B0333444A

PATIENT
  Age: 74 Year
  Sex: Female
  Weight: 44 kg

DRUGS (3)
  1. VALTREX [Suspect]
     Indication: HERPES ZOSTER
     Route: 048
     Dates: start: 20040519, end: 20040525
  2. HAEMODIALYSIS [Concomitant]
     Route: 065
  3. ARASENA-A [Concomitant]
     Indication: HERPES ZOSTER
     Route: 061
     Dates: start: 20040517, end: 20040525

REACTIONS (3)
  - DYSLALIA [None]
  - ENCEPHALOPATHY [None]
  - PSYCHIATRIC SYMPTOM [None]
